FAERS Safety Report 5451813-9 (Version None)
Quarter: 2007Q3

REPORT INFORMATION
  Report Type: 
  Country: None (occurrence: None)
  Receive Date: 20070806
  Receipt Date: 20070129
  Transmission Date: 20080115
  Serious: Yes (Other)
  Sender: FDA-Public Use
  Company Number: 34233

PATIENT
  Sex: Female

DRUGS (2)
  1. MIDAZOLAM HCL [Suspect]
     Indication: SEDATION
     Dosage: 6ML
     Dates: start: 20070122
  2. MIDAZOLAM HCL [Suspect]
     Indication: SEDATION
     Dosage: 6ML
     Dates: start: 20070122

REACTIONS (1)
  - DRUG INEFFECTIVE [None]
